FAERS Safety Report 8047423-X (Version None)
Quarter: 2012Q1

REPORT INFORMATION
  Report Type: 
  Country: None (occurrence: None)
  Receive Date: 20120116
  Receipt Date: 20120113
  Transmission Date: 20120608
  Serious: Yes (Death)
  Sender: FDA-Public Use
  Company Number: US-BRISTOL-MYERS SQUIBB COMPANY-16349409

PATIENT
  Age: 71 Year
  Sex: Female

DRUGS (1)
  1. YERVOY [Suspect]
     Dosage: TOTAL DOSE: 3 DOSES

REACTIONS (1)
  - DEATH [None]
